FAERS Safety Report 23029373 (Version 1)
Quarter: 2023Q4

REPORT INFORMATION
  Report Type: Spontaneous
  Country: CH (occurrence: CH)
  Receive Date: 20231004
  Receipt Date: 20231004
  Transmission Date: 20240110
  Serious: Yes (Life-Threatening, Hospitalization, Other)
  Sender: FDA-Public Use
  Company Number: CH-PFIZER INC-PV202300162880

PATIENT
  Sex: Female

DRUGS (1)
  1. METHOTREXATE SODIUM [Suspect]
     Active Substance: METHOTREXATE SODIUM
     Indication: Psoriasis
     Dosage: 12.5 MG, DAILY

REACTIONS (9)
  - Accidental overdose [Unknown]
  - Skin ulcer [Unknown]
  - Oral mucosa erosion [Unknown]
  - Genital erosion [Unknown]
  - Renal failure [Unknown]
  - Thrombocytopenia [Unknown]
  - Leukopenia [Unknown]
  - Off label use [Unknown]
  - Dehydration [Unknown]
